FAERS Safety Report 25620728 (Version 1)
Quarter: 2025Q3

REPORT INFORMATION
  Report Type: Spontaneous
  Country: EU (occurrence: EU)
  Receive Date: 20250730
  Receipt Date: 20250730
  Transmission Date: 20251021
  Serious: Yes (Other)
  Sender: AUROBINDO
  Company Number: EU-AFSSAPS-AVBX2025000578

PATIENT
  Age: 48 Year
  Sex: Male

DRUGS (4)
  1. DIAZEPAM [Suspect]
     Active Substance: DIAZEPAM
     Indication: Agitation
     Route: 048
     Dates: start: 20250606
  2. LOXAPINE [Suspect]
     Active Substance: LOXAPINE
     Indication: Agitation
     Route: 048
     Dates: start: 20250606
  3. MORPHINE SULFATE [Suspect]
     Active Substance: MORPHINE SULFATE
     Indication: Pain
     Route: 048
     Dates: start: 2025
  4. HEROIN [Suspect]
     Active Substance: DIAMORPHINE
     Indication: Product used for unknown indication
     Route: 065
     Dates: start: 2025

REACTIONS (2)
  - Altered state of consciousness [Recovered/Resolved]
  - Agitation [Recovered/Resolved]

NARRATIVE: CASE EVENT DATE: 20250606
